FAERS Safety Report 5892988-7 (Version None)
Quarter: 2008Q3

REPORT INFORMATION
  Report Type: 
  Country: None (occurrence: None)
  Receive Date: 20080923
  Receipt Date: 20070619
  Transmission Date: 20090109
  Serious: No
  Sender: FDA-Public Use
  Company Number: US-ASTRAZENECA-2007UW14608

PATIENT
  Age: 51 Year
  Sex: Male

DRUGS (5)
  1. SEROQUEL [Suspect]
     Indication: DEPRESSION
     Route: 048
     Dates: start: 20070601, end: 20070601
  2. SEROQUEL [Suspect]
     Indication: ANXIETY
     Route: 048
     Dates: start: 20070601, end: 20070601
  3. SEROQUEL [Suspect]
     Indication: SLEEP DISORDER
     Route: 048
     Dates: start: 20070601, end: 20070601
  4. ENDOCET [Concomitant]
  5. LYRICA [Concomitant]

REACTIONS (10)
  - BACK PAIN [None]
  - CHILLS [None]
  - CONFUSIONAL STATE [None]
  - CONSTIPATION [None]
  - DIZZINESS [None]
  - DYSURIA [None]
  - GAIT DISTURBANCE [None]
  - GROIN PAIN [None]
  - HYPERHIDROSIS [None]
  - INSOMNIA [None]
